FAERS Safety Report 15592296 (Version 1)
Quarter: 2018Q4

REPORT INFORMATION
  Report Type: Spontaneous
  Country: US (occurrence: US)
  Receive Date: 20181107
  Receipt Date: 20181107
  Transmission Date: 20190205
  Serious: Yes (Other)
  Sender: FDA-Public Use
  Company Number: US-BAYER-2018-203194

PATIENT
  Sex: Female

DRUGS (3)
  1. ONE A DAY WOMEN^S [Suspect]
     Active Substance: MINERALS\VITAMINS
     Indication: NUTRITIONAL SUPPLEMENTATION
     Route: 048
  2. CORICIDIN HBP MAXIMUM STRENGTH FLU [Suspect]
     Active Substance: ACETAMINOPHEN\CHLORPHENIRAMINE MALEATE\DEXTROMETHORPHAN HYDROBROMIDE
     Indication: NASOPHARYNGITIS
  3. CORICIDIN HBP MAXIMUM STRENGTH FLU [Suspect]
     Active Substance: ACETAMINOPHEN\CHLORPHENIRAMINE MALEATE\DEXTROMETHORPHAN HYDROBROMIDE
     Indication: ALLERGIC RESPIRATORY SYMPTOM
     Route: 048

REACTIONS (1)
  - Choking [Unknown]
